FAERS Safety Report 5419302-5 (Version None)
Quarter: 2007Q3

REPORT INFORMATION
  Report Type: 
  Country: None (occurrence: None)
  Receive Date: 20070820
  Receipt Date: 20070808
  Transmission Date: 20080115
  Serious: Yes (Life-Threatening, Hospitalization, Disabling, Other)
  Sender: FDA-Public Use
  Company Number: US-JNJFOC-20070801737

PATIENT
  Age: 46 Year
  Sex: Male

DRUGS (15)
  1. PREZISTA [Suspect]
     Indication: HIV INFECTION
     Route: 048
  2. MK0518/PLACEBO [Suspect]
     Indication: HIV INFECTION
     Route: 048
  3. NORVIR [Suspect]
     Indication: HIV INFECTION
     Route: 048
  4. FUZEON [Suspect]
     Indication: HIV INFECTION
     Route: 058
  5. REYATAZ [Suspect]
     Indication: HIV INFECTION
     Route: 048
  6. TRUVADA [Suspect]
     Indication: HIV INFECTION
     Route: 048
  7. BACTRIM [Concomitant]
     Route: 065
  8. DIFLUCAN [Concomitant]
     Route: 065
  9. PROCRIT [Concomitant]
     Route: 065
  10. TRAMDOLOR [Concomitant]
     Route: 048
  11. TRICOR [Concomitant]
     Route: 065
  12. ZITHROMAX [Concomitant]
     Route: 065
  13. ACYCLOVIR [Concomitant]
     Route: 065
  14. ETODOLAC [Concomitant]
     Route: 065
  15. FERROUS SULFATE TAB [Concomitant]
     Route: 065

REACTIONS (2)
  - DIFFUSE LARGE B-CELL LYMPHOMA [None]
  - IMMUNE RECONSTITUTION SYNDROME [None]
